FAERS Safety Report 5473900-1 (Version None)
Quarter: 2007Q4

REPORT INFORMATION
  Report Type: 
  Country: None (occurrence: None)
  Receive Date: 20071001
  Receipt Date: 20070920
  Transmission Date: 20080405
  Serious: Yes (Other)
  Sender: FDA-Public Use
  Company Number: JP-PFIZER INC-2007078957

PATIENT
  Age: 71 Year
  Sex: Male

DRUGS (6)
  1. MINIPRESS [Suspect]
     Route: 048
  2. HARNAL [Suspect]
     Route: 048
  3. LANIRAPID [Concomitant]
  4. ALLOPURINOL [Concomitant]
  5. LASIX [Concomitant]
  6. KARY UNI [Concomitant]
     Route: 047
     Dates: start: 20050501, end: 20070903

REACTIONS (1)
  - FLOPPY IRIS SYNDROME [None]
